FAERS Safety Report 9184917 (Version 1)
Quarter: 2013Q1

REPORT INFORMATION
  Report Type: Spontaneous
  Country: US (occurrence: US)
  Receive Date: 20130325
  Receipt Date: 20130325
  Transmission Date: 20140127
  Serious: Yes (Other)
  Sender: FDA-Public Use
  Company Number: US-BRISTOL-MYERS SQUIBB COMPANY-16529554

PATIENT
  Age: 60 Year
  Sex: Male
  Weight: 82.54 kg

DRUGS (2)
  1. ERBITUX [Suspect]
     Indication: RECTAL CANCER
     Dates: start: 201106, end: 201203
  2. ERBITUX [Suspect]
     Indication: HEPATIC CANCER
     Dates: start: 201106, end: 201203

REACTIONS (1)
  - Malignant neoplasm progression [Unknown]
